FAERS Safety Report 5496105-7 (Version None)
Quarter: 2007Q4

REPORT INFORMATION
  Report Type: 
  Country: None (occurrence: None)
  Receive Date: 20071025
  Receipt Date: 20070125
  Transmission Date: 20080405
  Serious: No
  Sender: FDA-Public Use
  Company Number: A0637029A

PATIENT
  Age: 77 Year
  Sex: Female

DRUGS (8)
  1. ADVAIR DISKUS 100/50 [Suspect]
     Dosage: 250MCG TWICE PER DAY
     Route: 055
  2. LISINOPRIL [Concomitant]
  3. TOPROL-XL [Concomitant]
  4. HYDROCODONE [Concomitant]
  5. LIPITOR [Concomitant]
  6. TRIAMTERENE AND HYDROCHLOROTHIAZIDE [Concomitant]
  7. QUININE SULFATE [Concomitant]
  8. FOSAMAX [Concomitant]

REACTIONS (1)
  - DYSPHONIA [None]
